FAERS Safety Report 15215306 (Version 1)
Quarter: 2018Q3

REPORT INFORMATION
  Report Type: Other
  Country: None (occurrence: US)
  Receive Date: 20180730
  Receipt Date: 20180730
  Transmission Date: 20181010
  Serious: Yes (Life-Threatening, Other)
  Sender: FDA-Public Use
  Company Number: US-MEDAC PHARMA, INC.-2052933

PATIENT
  Age: 65 Year
  Sex: Male

DRUGS (7)
  1. METHOTREXATE. [Suspect]
     Active Substance: METHOTREXATE
     Indication: ACUTE PROMYELOCYTIC LEUKAEMIA
     Route: 037
  2. TRETINOIN. [Suspect]
     Active Substance: TRETINOIN
  3. MITOXANTRONE [Suspect]
     Active Substance: MITOXANTRONE HYDROCHLORIDE
  4. ARSENIC TRIOXIDE [Suspect]
     Active Substance: ARSENIC TRIOXIDE
  5. IDARUBICIN HYDROCHLORIDE. [Suspect]
     Active Substance: IDARUBICIN HYDROCHLORIDE
  6. MERCAPTOPURINE. [Suspect]
     Active Substance: MERCAPTOPURINE
  7. CYTARABINE. [Suspect]
     Active Substance: CYTARABINE

REACTIONS (4)
  - Cytogenetic abnormality [Unknown]
  - Paraesthesia [Unknown]
  - Subarachnoid haemorrhage [Recovered/Resolved]
  - Haematopoietic neoplasm [Recovered/Resolved]
